FAERS Safety Report 25856345 (Version 1)
Quarter: 2025Q3

REPORT INFORMATION
  Report Type: Spontaneous
  Country: US (occurrence: US)
  Receive Date: 20250928
  Receipt Date: 20250928
  Transmission Date: 20251021
  Serious: Yes (Other)
  Sender: BEIGENE
  Company Number: US-BEIGENE-BGN-2025-016510

PATIENT
  Age: 72 Year

DRUGS (7)
  1. BRUKINSA [Interacting]
     Active Substance: ZANUBRUTINIB
     Indication: Product used for unknown indication
  2. BRUKINSA [Interacting]
     Active Substance: ZANUBRUTINIB
  3. BRUKINSA [Interacting]
     Active Substance: ZANUBRUTINIB
  4. BRUKINSA [Interacting]
     Active Substance: ZANUBRUTINIB
  5. PREMPRO [Interacting]
     Active Substance: ESTROGENS, CONJUGATED\MEDROXYPROGESTERONE ACETATE
     Indication: Hormone replacement therapy
  6. ESTRIOL [Concomitant]
     Active Substance: ESTRIOL
  7. ESTRIOL [Concomitant]
     Active Substance: ESTRIOL

REACTIONS (3)
  - Postmenopausal haemorrhage [Not Recovered/Not Resolved]
  - Drug interaction [Unknown]
  - Drug ineffective [Unknown]
